FAERS Safety Report 6442121-8 (Version None)
Quarter: 2009Q4

REPORT INFORMATION
  Report Type: 
  Country: None (occurrence: None)
  Receive Date: 20091116
  Receipt Date: 20091105
  Transmission Date: 20100525
  Serious: Yes (Other)
  Sender: FDA-Public Use
  Company Number: PHEH2009US15271

PATIENT
  Sex: Female

DRUGS (1)
  1. LOTENSIN [Suspect]
     Dosage: 20 MG, QD

REACTIONS (2)
  - CONVULSION [None]
  - COUGH [None]
